FAERS Safety Report 9105592 (Version 1)
Quarter: 2013Q1

REPORT INFORMATION
  Report Type: Report from Study
  Country: KR (occurrence: KR)
  Receive Date: 20130220
  Receipt Date: 20130220
  Transmission Date: 20140127
  Serious: Yes (Death, Life-Threatening)
  Sender: FDA-Public Use
  Company Number: KR-OTSUKA-US-2013-10241

PATIENT
  Age: 35 Year
  Sex: Male

DRUGS (1)
  1. BUSULFEX [Suspect]
     Indication: DIFFUSE LARGE B-CELL LYMPHOMA
     Dosage: 3.2 MG/KG, QD
     Route: 042

REACTIONS (2)
  - Disease recurrence [Unknown]
  - Renal failure acute [Fatal]
